FAERS Safety Report 7790167-X (Version None)
Quarter: 2011Q3

REPORT INFORMATION
  Report Type: 
  Country: None (occurrence: None)
  Receive Date: 20110930
  Receipt Date: 20101118
  Transmission Date: 20111222
  Serious: No
  Sender: FDA-Public Use
  Company Number: US-ASTRAZENECA-2010SE55029

PATIENT
  Age: 44 Year
  Sex: Female
  Weight: 78.5 kg

DRUGS (4)
  1. ARIMIDEX [Suspect]
     Indication: NEOPLASM MALIGNANT
     Route: 048
     Dates: start: 20070101
  2. LUPRON [Concomitant]
  3. ARIMIDEX [Suspect]
     Route: 048
     Dates: start: 20100901
  4. ANASTROZOLE [Suspect]
     Indication: NEOPLASM MALIGNANT
     Route: 048
     Dates: start: 20100701, end: 20100901

REACTIONS (3)
  - DRUG DOSE OMISSION [None]
  - CRYING [None]
  - PERSONALITY CHANGE [None]
